FAERS Safety Report 11230669 (Version 2)
Quarter: 2015Q3

REPORT INFORMATION
  Report Type: Report from Study
  Country: HU (occurrence: HU)
  Receive Date: 20150629
  Receipt Date: 20150811
  Transmission Date: 20151125
  Serious: Yes (Hospitalization)
  Sender: FDA-Public Use
  Company Number: 2015SGN01043

PATIENT

DRUGS (4)
  1. VINBLASTINE [Suspect]
     Active Substance: VINBLASTINE
     Indication: HODGKIN^S DISEASE
     Dosage: 6 MG/M2, UNK
     Route: 042
     Dates: start: 20150529, end: 20150529
  2. DACARBAZINE. [Suspect]
     Active Substance: DACARBAZINE
     Indication: HODGKIN^S DISEASE
     Dosage: 375 MG/M2, UNK
     Route: 042
     Dates: start: 20150529, end: 20150529
  3. BRENTUXIMAB VEDOTIN [Suspect]
     Active Substance: BRENTUXIMAB VEDOTIN
     Indication: HODGKIN^S DISEASE
     Dosage: 1.2 MG/KG, UNK
     Route: 042
     Dates: start: 20150529, end: 20150529
  4. DOXORUBICIN [Suspect]
     Active Substance: DOXORUBICIN
     Indication: HODGKIN^S DISEASE
     Dosage: 25 MG/M2, UNK
     Route: 042
     Dates: start: 20150529, end: 20150529

REACTIONS (9)
  - Urticaria [None]
  - Diarrhoea [Recovered/Resolved]
  - Hyponatraemia [None]
  - International normalised ratio increased [None]
  - Dehydration [Recovered/Resolved]
  - Gingival bleeding [None]
  - Hypokalaemia [None]
  - Hepatic failure [None]
  - Abdominal pain [None]

NARRATIVE: CASE EVENT DATE: 20150611
